FAERS Safety Report 21039057 (Version 13)
Quarter: 2023Q1

REPORT INFORMATION
  Report Type: Spontaneous
  Country: GB (occurrence: GB)
  Receive Date: 20220704
  Receipt Date: 20230227
  Transmission Date: 20230418
  Serious: Yes (Death, Hospitalization, Congenital Anomaly, Other)
  Sender: FDA-Public Use
  Company Number: GB-CIPLA LTD.-2022GB04083

PATIENT

DRUGS (55)
  1. TENOFOVIR [Suspect]
     Active Substance: TENOFOVIR
     Indication: HIV infection
     Dosage: 1 DOSAGE FORM, QD
     Route: 048
  2. TENOFOVIR [Suspect]
     Active Substance: TENOFOVIR
     Dosage: 300 MILLIGRAM, QD
     Route: 048
     Dates: start: 20100610
  3. TENOFOVIR [Suspect]
     Active Substance: TENOFOVIR
     Dosage: 1 DOSAGE FORM, QD
     Route: 048
     Dates: start: 20171006
  4. TENOFOVIR [Suspect]
     Active Substance: TENOFOVIR
     Dosage: 1 DOSAGE FORM, QD
     Route: 048
     Dates: start: 20171006, end: 20180205
  5. TENOFOVIR [Suspect]
     Active Substance: TENOFOVIR
     Dosage: 1 DOSAGE FORM, QD
     Route: 048
     Dates: start: 20180205
  6. TENOFOVIR [Suspect]
     Active Substance: TENOFOVIR
     Dosage: 1 DOSAGE FORM, QD
     Route: 048
  7. NEVIRAPINE [Suspect]
     Active Substance: NEVIRAPINE
     Indication: Antiretroviral therapy
     Dosage: 400 MILLIGRAM, QD
     Route: 048
     Dates: start: 20090101, end: 20100610
  8. NEVIRAPINE [Suspect]
     Active Substance: NEVIRAPINE
     Dosage: 400 MILLIGRAM, QD
     Route: 048
     Dates: start: 20090101, end: 20100610
  9. LABETALOL [Suspect]
     Active Substance: LABETALOL\LABETALOL HYDROCHLORIDE
     Indication: Product used for unknown indication
     Dosage: UNK
     Route: 048
  10. LABETALOL [Suspect]
     Active Substance: LABETALOL\LABETALOL HYDROCHLORIDE
     Dosage: UNK
     Route: 048
  11. ZIDOVUDINE [Suspect]
     Active Substance: ZIDOVUDINE
     Indication: Antiviral treatment
     Dosage: 600 MILLIGRAM, QD
     Route: 048
     Dates: start: 20090110, end: 20100610
  12. ZIDOVUDINE [Suspect]
     Active Substance: ZIDOVUDINE
     Dosage: 800 MILLIGRAM, QD
     Route: 048
     Dates: start: 20100610, end: 20100610
  13. COBAMAMIDE [Suspect]
     Active Substance: COBAMAMIDE
     Indication: Supplementation therapy
     Dosage: UNK
     Route: 065
  14. COBAMAMIDE [Suspect]
     Active Substance: COBAMAMIDE
     Dosage: UNK
     Route: 048
     Dates: start: 20100610
  15. TRUVADA [Suspect]
     Active Substance: EMTRICITABINE\TENOFOVIR DISOPROXIL FUMARATE
     Indication: HIV infection
     Dosage: 1 DOSAGE FORM, QD
     Route: 048
  16. TRUVADA [Suspect]
     Active Substance: EMTRICITABINE\TENOFOVIR DISOPROXIL FUMARATE
     Indication: Supplementation therapy
     Dosage: 1 DOSAGE FORM, QD
     Route: 048
     Dates: start: 20171006, end: 20180205
  17. TRUVADA [Suspect]
     Active Substance: EMTRICITABINE\TENOFOVIR DISOPROXIL FUMARATE
     Dosage: 1 DOSAGE FORM, QD
     Route: 048
     Dates: start: 20171006, end: 20180205
  18. TRUVADA [Suspect]
     Active Substance: EMTRICITABINE\TENOFOVIR DISOPROXIL FUMARATE
     Dosage: 1 DOSAGE FORM, QD
     Route: 048
     Dates: start: 20180205
  19. LOPINAVIR\RITONAVIR [Suspect]
     Active Substance: LOPINAVIR\RITONAVIR
     Indication: Antiviral treatment
     Dosage: UNK
     Route: 048
     Dates: start: 20100610, end: 20100610
  20. LOPINAVIR\RITONAVIR [Suspect]
     Active Substance: LOPINAVIR\RITONAVIR
     Indication: HIV infection
     Dosage: UNK
     Route: 048
     Dates: start: 20100610
  21. LOPINAVIR\RITONAVIR [Suspect]
     Active Substance: LOPINAVIR\RITONAVIR
     Dosage: UNK
     Route: 048
     Dates: start: 20100610
  22. EFAVIRENZ [Suspect]
     Active Substance: EFAVIRENZ
     Indication: HIV infection
     Dosage: 1 DOSAGE FORM, QD, CAPSULE (1 TABLET/CAPSULE DAILY)
     Route: 048
     Dates: start: 20171006, end: 20180205
  23. LAMIVUDINE [Suspect]
     Active Substance: LAMIVUDINE
     Indication: Antiretroviral therapy
     Dosage: 300 MILLIGRAM, QD
     Route: 048
     Dates: start: 20090101, end: 20100610
  24. ISENTRESS [Suspect]
     Active Substance: RALTEGRAVIR POTASSIUM
     Indication: HIV infection
     Dosage: 800 MILLIGRAM, QID (3200 MILLIGRAM QD)
     Route: 048
     Dates: start: 20100610
  25. ISENTRESS [Suspect]
     Active Substance: RALTEGRAVIR POTASSIUM
     Dosage: 3200 MILLIGRAM, QD (800 MG, QID, EVERY 6 HOUR)
     Route: 048
     Dates: start: 20100610
  26. ISENTRESS [Suspect]
     Active Substance: RALTEGRAVIR POTASSIUM
     Dosage: 3200 MILLIGRAM, QD (800 MG, QID, EVERY 6 HOUR)
     Route: 048
     Dates: start: 20100610
  27. METFORMIN HYDROCHLORIDE [Suspect]
     Active Substance: METFORMIN HYDROCHLORIDE
     Indication: Product used for unknown indication
     Dosage: UNK
     Route: 065
  28. METFORMIN HYDROCHLORIDE [Suspect]
     Active Substance: METFORMIN HYDROCHLORIDE
     Dosage: UNK (TABLET (UNCOATED ORAL)
     Route: 048
  29. EFAVIRENZ [Suspect]
     Active Substance: EFAVIRENZ
     Indication: HIV infection
     Dosage: UNK
     Route: 048
     Dates: start: 20171006
  30. EFAVIRENZ [Suspect]
     Active Substance: EFAVIRENZ
     Dosage: 1 DOSAGE FORM, QD
     Route: 048
     Dates: start: 20171006
  31. EFAVIRENZ [Suspect]
     Active Substance: EFAVIRENZ
     Dosage: 1 DOSAGE FORM, QD
     Route: 048
     Dates: start: 20180205
  32. KALETRA [Suspect]
     Active Substance: LOPINAVIR\RITONAVIR
     Indication: HIV infection
     Dosage: UNK
     Route: 048
     Dates: start: 20100610
  33. KALETRA [Suspect]
     Active Substance: LOPINAVIR\RITONAVIR
     Indication: Antiviral treatment
     Dosage: UNK
     Route: 048
     Dates: start: 20100610
  34. FOLIC ACID [Suspect]
     Active Substance: FOLIC ACID
     Indication: Supplementation therapy
     Dosage: 1 DOSAGE FORM, QD
     Route: 048
  35. FOLIC ACID [Suspect]
     Active Substance: FOLIC ACID
     Dosage: 1 DOSAGE FORM (1 TABLET/CAPSULE)
     Route: 048
  36. INSULIN ASPART [Suspect]
     Active Substance: INSULIN ASPART
     Indication: Product used for unknown indication
     Dosage: UNK
     Route: 065
  37. INSULIN ASPART [Suspect]
     Active Substance: INSULIN ASPART
     Dosage: UNK
     Route: 065
  38. INSULIN ASPART [Suspect]
     Active Substance: INSULIN ASPART
     Dosage: UNK
     Route: 065
  39. INSULIN ASPART [Suspect]
     Active Substance: INSULIN ASPART
     Dosage: UNK
     Route: 065
  40. EMTRICITABINE\TENOFOVIR DISOPROXIL [Suspect]
     Active Substance: EMTRICITABINE\TENOFOVIR DISOPROXIL
     Indication: HIV infection
     Dosage: 1 DOSAGE FORM, QD TABLET
     Route: 048
     Dates: start: 20170610, end: 20180205
  41. EMTRICITABINE\TENOFOVIR DISOPROXIL [Suspect]
     Active Substance: EMTRICITABINE\TENOFOVIR DISOPROXIL
     Indication: Supplementation therapy
     Dosage: 1 DOSAGE FORM, QD 1 TABLET (FILM COATED TABLET)
     Route: 048
     Dates: start: 20171006, end: 20180205
  42. EMTRICITABINE\TENOFOVIR DISOPROXIL [Suspect]
     Active Substance: EMTRICITABINE\TENOFOVIR DISOPROXIL
     Dosage: 1 DOSAGE FORM, QD 1 TABLET
     Route: 048
     Dates: start: 20180205
  43. EMTRICITABINE\TENOFOVIR DISOPROXIL [Suspect]
     Active Substance: EMTRICITABINE\TENOFOVIR DISOPROXIL
     Dosage: 1 DOSAGE FORM, QD
     Route: 048
  44. EMTRICITABINE\TENOFOVIR DISOPROXIL [Suspect]
     Active Substance: EMTRICITABINE\TENOFOVIR DISOPROXIL
     Dosage: 1 DOSAGE FORM, QD 1 TABLET
     Route: 048
     Dates: start: 20180205
  45. EMTRICITABINE\TENOFOVIR DISOPROXIL [Suspect]
     Active Substance: EMTRICITABINE\TENOFOVIR DISOPROXIL
     Dosage: 1 DOSAGE FORM, QD 1 TABLET
     Route: 048
     Dates: start: 20180205
  46. EMTRICITABINE\TENOFOVIR DISOPROXIL [Suspect]
     Active Substance: EMTRICITABINE\TENOFOVIR DISOPROXIL
     Dosage: 1 DOSAGE FORM, QD 1 TABLET (FILM COATED TABLET)
     Route: 048
     Dates: start: 20171006
  47. LOPINAVIR [Suspect]
     Active Substance: LOPINAVIR
     Indication: Product used for unknown indication
     Dosage: UNK
     Route: 048
     Dates: start: 20100610
  48. EMTRICITABINE [Suspect]
     Active Substance: EMTRICITABINE
     Indication: HIV infection
     Dosage: 1 DOSAGE FORM, QD
     Route: 048
     Dates: start: 20180205
  49. EMTRICITABINE [Suspect]
     Active Substance: EMTRICITABINE
     Indication: Supplementation therapy
     Dosage: 1 DOSAGE FORM, QD
     Route: 048
     Dates: start: 20171006, end: 20180205
  50. EMTRICITABINE [Suspect]
     Active Substance: EMTRICITABINE
     Dosage: 1 DOSAGE FORM, QD
     Route: 048
     Dates: start: 20171006
  51. EMTRICITABINE [Suspect]
     Active Substance: EMTRICITABINE
     Dosage: 1 DOSAGE FORM, QD
     Route: 048
     Dates: start: 20180205
  52. CYANOCOBALAMIN [Suspect]
     Active Substance: CYANOCOBALAMIN
     Indication: Supplementation therapy
     Dosage: UNK
     Route: 065
  53. EMTRICITABINE\TENOFOVIR DISOPROXIL [Suspect]
     Active Substance: EMTRICITABINE\TENOFOVIR DISOPROXIL
     Indication: HIV infection
     Dosage: 1 DOSAGE FORM, QD
     Route: 048
     Dates: start: 20171006
  54. EMTRICITABINE\TENOFOVIR DISOPROXIL [Suspect]
     Active Substance: EMTRICITABINE\TENOFOVIR DISOPROXIL
     Dosage: 1 DOSAGE FORM, QD
     Route: 048
     Dates: start: 20180205
  55. RITONAVIR [Suspect]
     Active Substance: RITONAVIR
     Indication: HIV infection
     Dosage: UNK
     Route: 048
     Dates: start: 20100610

REACTIONS (4)
  - Hepatic cytolysis [Fatal]
  - Abortion spontaneous [Fatal]
  - Aspartate aminotransferase increased [Fatal]
  - Alanine aminotransferase increased [Fatal]

NARRATIVE: CASE EVENT DATE: 20120521
